FAERS Safety Report 6619730-6 (Version None)
Quarter: 2010Q1

REPORT INFORMATION
  Report Type: 
  Country: None (occurrence: None)
  Receive Date: 20100309
  Receipt Date: 20100224
  Transmission Date: 20100710
  Serious: Yes (Other)
  Sender: FDA-Public Use
  Company Number: PHHY2010US11515

PATIENT
  Sex: Male

DRUGS (1)
  1. MYFORTIC [Suspect]
     Dosage: 180 MG, BID

REACTIONS (6)
  - BENIGN PROSTATIC HYPERPLASIA [None]
  - CLOSTRIDIAL INFECTION [None]
  - IRRITABILITY [None]
  - POLLAKIURIA [None]
  - URINARY TRACT INFECTION [None]
  - WHEEZING [None]
